FAERS Safety Report 9927830 (Version 2)
Quarter: 2014Q1

REPORT INFORMATION
  Report Type: Spontaneous
  Country: US (occurrence: US)
  Receive Date: 20140227
  Receipt Date: 20140328
  Transmission Date: 20141002
  Serious: Yes (Hospitalization, Other)
  Sender: FDA-Public Use
  Company Number: US-AMGEN-USASP2014014007

PATIENT
  Age: 69 Year
  Sex: Male

DRUGS (3)
  1. ENBREL [Suspect]
     Indication: PRODUCT USED FOR UNKNOWN INDICATION
     Dosage: 50 MG, 2 TIMES/WK
     Route: 058
     Dates: start: 20040715, end: 20110425
  2. METHOTREXATE [Concomitant]
     Indication: PSORIASIS
     Dosage: 2.5 MG 3 TABLETS, QWK
     Route: 048
     Dates: start: 20140109, end: 20140224
  3. CLOBETASOL [Concomitant]
     Dosage: UNK

REACTIONS (4)
  - Throat cancer [Not Recovered/Not Resolved]
  - Drug effect decreased [Unknown]
  - Psoriatic arthropathy [Unknown]
  - Actinic keratosis [Unknown]
